FAERS Safety Report 21852637 (Version 1)
Quarter: 2023Q1

REPORT INFORMATION
  Report Type: Spontaneous
  Country: US (occurrence: None)
  Receive Date: 20230111
  Receipt Date: 20230111
  Transmission Date: 20230417
  Serious: Yes (Death)
  Sender: FDA-Public Use
  Company Number: None

PATIENT
  Age: 88 Year
  Sex: Male

DRUGS (1)
  1. ABIRATERONE [Suspect]
     Active Substance: ABIRATERONE
     Indication: Prostate cancer
     Dosage: FREQUENCY : DAILY;1000MG DAILY ORAL
     Route: 048
     Dates: start: 20211103, end: 20230103

REACTIONS (2)
  - Oedema [None]
  - Dyspnoea [None]

NARRATIVE: CASE EVENT DATE: 20221226
